FAERS Safety Report 24373737 (Version 1)
Quarter: 2024Q3

REPORT INFORMATION
  Report Type: Spontaneous
  Country: US (occurrence: US)
  Receive Date: 20240927
  Receipt Date: 20240927
  Transmission Date: 20241016
  Serious: No
  Sender: VIVUS
  Company Number: US-VIVUS LLC-2023V1001284

PATIENT
  Age: 54 Year
  Sex: Female

DRUGS (3)
  1. QSYMIA [Suspect]
     Active Substance: PHENTERMINE HYDROCHLORIDE\TOPIRAMATE
     Indication: Weight decreased
     Route: 065
  2. ORLISTAT [Concomitant]
     Active Substance: ORLISTAT
     Indication: Product used for unknown indication
  3. LIRAGLUTIDE [Concomitant]
     Active Substance: LIRAGLUTIDE
     Indication: Product used for unknown indication

REACTIONS (2)
  - Palpitations [Recovered/Resolved]
  - Anxiety [Recovered/Resolved]
